FAERS Safety Report 5726593-X (Version None)
Quarter: 2008Q2

REPORT INFORMATION
  Report Type: 
  Country: None (occurrence: None)
  Receive Date: 20080502
  Receipt Date: 20080424
  Transmission Date: 20081010
  Serious: Yes (Other)
  Sender: FDA-Public Use
  Company Number: US-JNJFOC-20080407421

PATIENT
  Sex: Male
  Weight: 90.72 kg

DRUGS (9)
  1. DURAGESIC-100 [Suspect]
     Indication: ARTHRALGIA
     Route: 062
  2. DURAGESIC-100 [Suspect]
     Indication: MYALGIA
     Dosage: 2X 12.5UG/HR PATCHES
     Route: 062
  3. HALCION [Suspect]
     Route: 048
  4. HALCION [Suspect]
     Indication: SLEEP DISORDER
     Route: 048
  5. CORTISONE [Suspect]
     Indication: ADRENAL DISORDER
     Dosage: 1.5 X 25MG
     Route: 048
  6. SYNTHROID [Suspect]
     Indication: THYROID DISORDER
     Route: 048
  7. ANDROGEL [Suspect]
     Indication: ADRENAL DISORDER
     Route: 061
  8. CYMBALTA [Suspect]
     Indication: PAIN
     Route: 048
  9. HYDROCODONE BITARTRATE [Suspect]
     Indication: BREAKTHROUGH PAIN
     Dosage: 0.5-1 AS NEEDED
     Route: 048

REACTIONS (6)
  - ADRENAL DISORDER [None]
  - DRUG DISPENSING ERROR [None]
  - DRUG HYPERSENSITIVITY [None]
  - DYSPNOEA [None]
  - EXPIRED DRUG ADMINISTERED [None]
  - NEURALGIA [None]
